FAERS Safety Report 23682064 (Version 2)
Quarter: 2024Q2

REPORT INFORMATION
  Report Type: Spontaneous
  Country: JP (occurrence: JP)
  Receive Date: 20240328
  Receipt Date: 20240401
  Transmission Date: 20240716
  Serious: Yes (Death, Life-Threatening, Hospitalization, Other)
  Sender: FDA-Public Use
  Company Number: JP-Accord-415373

PATIENT
  Age: 74 Year
  Sex: Male

DRUGS (7)
  1. OXALIPLATIN [Suspect]
     Active Substance: OXALIPLATIN
     Indication: Gastric cancer stage IV
     Dosage: FIRST TO FOURTH DOSE
     Dates: start: 202205, end: 2022
  2. NIVOLUMAB [Suspect]
     Active Substance: NIVOLUMAB
     Indication: Gastric cancer stage IV
     Dosage: FIRST TO FOURTH DOSE
     Dates: start: 202205
  3. TS-1 [Suspect]
     Active Substance: GIMERACIL\OTERACIL POTASSIUM\TEGAFUR
     Indication: Gastric cancer stage IV
     Dosage: 80 MG/BODY?(FIFTH DOSE)
     Dates: start: 2022
  4. TS-1 [Suspect]
     Active Substance: GIMERACIL\OTERACIL POTASSIUM\TEGAFUR
     Indication: Metastases to peritoneum
     Dosage: 80 MG/BODY?(FIFTH DOSE)
     Dates: start: 2022
  5. TS-1 [Suspect]
     Active Substance: GIMERACIL\OTERACIL POTASSIUM\TEGAFUR
     Indication: Gastric cancer stage IV
     Dosage: FIRST TO FOURTH DOSE
     Dates: start: 202205
  6. NIVOLUMAB [Suspect]
     Active Substance: NIVOLUMAB
     Indication: Metastases to peritoneum
     Dosage: FIFTH DOSE,  360 MG/BODY
     Dates: start: 2022
  7. OXALIPLATIN [Suspect]
     Active Substance: OXALIPLATIN
     Indication: Metastases to peritoneum
     Dosage: FIFTH DOSE, 190MG/BODY
     Dates: start: 2022

REACTIONS (6)
  - Pneumonia bacterial [Fatal]
  - Organising pneumonia [Fatal]
  - Diffuse alveolar damage [Fatal]
  - Myocardial infarction [Fatal]
  - Disseminated intravascular coagulation [Fatal]
  - Renal infarct [Fatal]
